FAERS Safety Report 9981900 (Version 1)
Quarter: 2014Q1

REPORT INFORMATION
  Report Type: Report from Study
  Country: US (occurrence: US)
  Receive Date: 20140307
  Receipt Date: 20140307
  Transmission Date: 20141002
  Serious: No
  Sender: FDA-Public Use
  Company Number: US-ABBVIE-13P-163-1181719-00

PATIENT
  Age: 53 Year
  Sex: Male

DRUGS (5)
  1. HUMIRA [Suspect]
     Indication: COLITIS ULCERATIVE
     Dates: start: 20131116, end: 20131116
  2. HUMIRA [Suspect]
     Dates: start: 20131130, end: 20131130
  3. HUMIRA [Suspect]
     Dates: start: 20131214
  4. BLOOD PRESSURE PILL [Concomitant]
     Indication: BLOOD PRESSURE
  5. PREDNISONE [Concomitant]
     Indication: COLITIS ULCERATIVE

REACTIONS (1)
  - Haematochezia [Recovered/Resolved]
